FAERS Safety Report 20607152 (Version 1)
Quarter: 2022Q1

REPORT INFORMATION
  Report Type: Spontaneous
  Country: HK (occurrence: HK)
  Receive Date: 20220317
  Receipt Date: 20220317
  Transmission Date: 20220423
  Serious: Yes (Life-Threatening, Hospitalization)
  Sender: FDA-Public Use
  Company Number: HK-LUPIN PHARMACEUTICALS INC.-2022-03531

PATIENT
  Age: 75 Year
  Sex: Male

DRUGS (8)
  1. LEVOFLOXACIN [Suspect]
     Active Substance: LEVOFLOXACIN
     Indication: Coronavirus pneumonia
     Dosage: UNK
     Route: 042
     Dates: start: 2019
  2. VANCOMYCIN [Suspect]
     Active Substance: VANCOMYCIN
     Indication: Coronavirus pneumonia
     Dosage: UNK
     Route: 042
     Dates: start: 2019
  3. CEFTRIAXONE [Suspect]
     Active Substance: CEFTRIAXONE
     Indication: Evidence based treatment
     Dosage: UNK
     Route: 042
     Dates: start: 2019
  4. DOXYCYCLINE [Suspect]
     Active Substance: DOXYCYCLINE
     Indication: Evidence based treatment
     Dosage: UNK
     Route: 048
     Dates: start: 2019
  5. HYDROCORTISONE [Suspect]
     Active Substance: HYDROCORTISONE
     Indication: Evidence based treatment
     Dosage: UNK
     Route: 042
     Dates: start: 2019
  6. MEROPENEM [Suspect]
     Active Substance: MEROPENEM
     Indication: Coronavirus pneumonia
     Dosage: UNK
     Route: 042
     Dates: start: 2019
  7. ANIDULAFUNGIN [Suspect]
     Active Substance: ANIDULAFUNGIN
     Indication: Candida infection
     Dosage: UNK
     Route: 042
     Dates: start: 2019
  8. PIPERACILLIN SODIUM\TAZOBACTAM SODIUM [Suspect]
     Active Substance: PIPERACILLIN SODIUM\TAZOBACTAM SODIUM
     Indication: Evidence based treatment
     Dosage: UNK
     Route: 042
     Dates: start: 2019, end: 2019

REACTIONS (3)
  - Drug ineffective [Unknown]
  - Drug ineffective for unapproved indication [Unknown]
  - Off label use [Unknown]

NARRATIVE: CASE EVENT DATE: 20190101
